FAERS Safety Report 5277596-3 (Version None)
Quarter: 2007Q1

REPORT INFORMATION
  Report Type: 
  Country: None (occurrence: None)
  Receive Date: 20070327
  Receipt Date: 20070312
  Transmission Date: 20070707
  Serious: Yes (Other)
  Sender: FDA-Public Use
  Company Number: US-SHR-US-2006-017397

PATIENT
  Age: 49 Year
  Sex: Female
  Weight: 74.376 kg

DRUGS (5)
  1. BETASERON [Suspect]
     Indication: RELAPSING-REMITTING MULTIPLE SCLEROSIS
     Dosage: 8 MIU, EVERY 2D
     Route: 058
     Dates: start: 20030911
  2. KLONOPIN [Concomitant]
     Dosage: 1 MG, 3X/DAY
     Route: 048
  3. SYNTHROID [Concomitant]
     Dosage: 100 UNK, DAILY
     Route: 048
  4. LIPITOR [Concomitant]
     Dosage: 20 MG/D, UNK
  5. DETROL                                  /USA/ [Concomitant]

REACTIONS (7)
  - ANXIETY [None]
  - ASTHENIA [None]
  - CENTRAL NERVOUS SYSTEM LESION [None]
  - CEREBROVASCULAR ACCIDENT [None]
  - DRUG DOSE OMISSION [None]
  - FATIGUE [None]
  - PANIC ATTACK [None]
